FAERS Safety Report 9054633 (Version 1)
Quarter: 2013Q1

REPORT INFORMATION
  Report Type: Spontaneous
  Country: US (occurrence: US)
  Receive Date: 20130208
  Receipt Date: 20130208
  Transmission Date: 20140127
  Serious: Yes (Hospitalization)
  Sender: FDA-Public Use
  Company Number: US-BAYER-2013-015124

PATIENT
  Age: 18 Year
  Sex: Female
  Weight: 73.02 kg

DRUGS (7)
  1. YAZ [Suspect]
  2. YASMIN [Suspect]
  3. ZITHROMAX [Concomitant]
     Indication: OROPHARYNGEAL PAIN
     Dosage: 250 MG, UNK
     Route: 048
     Dates: start: 20080915
  4. BACTRIM [Concomitant]
     Dosage: 800 MG, BID FOR 7 DAYS
     Route: 048
     Dates: start: 20081013
  5. TYLENOL WITH CODEIN #3 [Concomitant]
     Route: 048
  6. ROCEPHIN [Concomitant]
  7. FLOMAX [Concomitant]

REACTIONS (2)
  - Deep vein thrombosis [None]
  - Pelvic venous thrombosis [None]
